FAERS Safety Report 5359499-9 (Version None)
Quarter: 2007Q2

REPORT INFORMATION
  Report Type: 
  Country: None (occurrence: None)
  Receive Date: 20070615
  Receipt Date: 20070606
  Transmission Date: 20071010
  Serious: Yes (Hospitalization, Other)
  Sender: FDA-Public Use
  Company Number: FR-PFIZER INC-2007046656

PATIENT
  Age: 79 Year
  Sex: Female

DRUGS (1)
  1. NEURONTIN [Suspect]
     Indication: POLYNEUROPATHY

REACTIONS (2)
  - FALL [None]
  - HEAD INJURY [None]
